FAERS Safety Report 10239900 (Version 3)
Quarter: 2014Q3

REPORT INFORMATION
  Report Type: Spontaneous
  Country: DE (occurrence: DE)
  Receive Date: 20140616
  Receipt Date: 20140717
  Transmission Date: 20150326
  Serious: Yes (Other)
  Sender: FDA-Public Use
  Company Number: DE-GILEAD-2014-0105304

PATIENT
  Sex: Female

DRUGS (3)
  1. PEGYLATED INTERFERON ALPHA NOS [Concomitant]
     Active Substance: PEGINTERFERON ALFA-2A OR PEGINTERFERON ALFA-2B
     Dosage: UNK
     Route: 065
  2. SOVALDI [Suspect]
     Active Substance: SOFOSBUVIR
     Indication: HEPATITIS C
     Dosage: 1 DF, QD
     Route: 065
     Dates: start: 20140604
  3. RIBAVIRIN. [Concomitant]
     Active Substance: RIBAVIRIN
     Dosage: UNK
     Route: 065

REACTIONS (2)
  - Jaundice [Recovered/Resolved]
  - Blood bilirubin abnormal [Recovered/Resolved]
